FAERS Safety Report 13100768 (Version 2)
Quarter: 2017Q1

REPORT INFORMATION
  Report Type: Spontaneous
  Country: TW (occurrence: TW)
  Receive Date: 20170110
  Receipt Date: 20170321
  Transmission Date: 20170428
  Serious: Yes (Death, Hospitalization)
  Sender: FDA-Public Use
  Company Number: TW-SA-2016SA164266

PATIENT
  Sex: Male
  Weight: 2.8 kg

DRUGS (2)
  1. MYOZYME [Suspect]
     Active Substance: ALGLUCOSIDASE ALFA
     Indication: GLYCOGEN STORAGE DISEASE TYPE II
     Dosage: 2 VIALS
     Route: 042
     Dates: start: 20160715
  2. MYOZYME [Suspect]
     Active Substance: ALGLUCOSIDASE ALFA
     Indication: GLYCOGEN STORAGE DISEASE TYPE II
     Dosage: DOUBLE DOSE
     Route: 042
     Dates: start: 20160831, end: 20161230

REACTIONS (3)
  - Disease progression [Fatal]
  - Congenital cardiovascular anomaly [Fatal]
  - Off label use [Unknown]
